FAERS Safety Report 18330079 (Version 7)
Quarter: 2022Q2

REPORT INFORMATION
  Report Type: Spontaneous
  Country: US (occurrence: US)
  Receive Date: 20200930
  Receipt Date: 20220622
  Transmission Date: 20220721
  Serious: Yes (Other)
  Sender: FDA-Public Use
  Company Number: US-PFIZER INC-2020376975

PATIENT
  Age: 65 Year
  Sex: Female

DRUGS (2)
  1. XELJANZ [Suspect]
     Active Substance: TOFACITINIB CITRATE
     Indication: Colitis ulcerative
     Dosage: 5 MG, 2X/DAY
  2. XELJANZ [Suspect]
     Active Substance: TOFACITINIB CITRATE
     Dosage: 10 MG

REACTIONS (11)
  - Haematochezia [Unknown]
  - Rectal haemorrhage [Unknown]
  - Cerebrovascular accident [Unknown]
  - Off label use [Unknown]
  - Pain [Unknown]
  - Spinal stenosis [Unknown]
  - Constipation [Unknown]
  - Diarrhoea [Unknown]
  - Defaecation urgency [Unknown]
  - Rectal fissure [Unknown]
  - Urinary tract infection [Unknown]
